FAERS Safety Report 17263082 (Version 1)
Quarter: 2020Q1

REPORT INFORMATION
  Report Type: Spontaneous
  Country: US (occurrence: US)
  Receive Date: 20200110
  Receipt Date: 20200110
  Transmission Date: 20200409
  Serious: Yes (Other)
  Sender: FDA-Public Use
  Company Number: None

PATIENT
  Age: 39 Year
  Sex: Female
  Weight: 67.95 kg

DRUGS (1)
  1. GADOLINIUM BASED-CONTRAST AGENT [Suspect]
     Active Substance: GADOLINIUM
     Dates: start: 20061222, end: 20061222

REACTIONS (3)
  - Glomerular filtration rate decreased [None]
  - Chronic kidney disease [None]
  - Nephrogenic systemic fibrosis [None]

NARRATIVE: CASE EVENT DATE: 20061222
